FAERS Safety Report 14752255 (Version 5)
Quarter: 2019Q4

REPORT INFORMATION
  Report Type: Spontaneous
  Country: FR (occurrence: CH)
  Receive Date: 20180412
  Receipt Date: 20191115
  Transmission Date: 20200122
  Serious: Yes (Other)
  Sender: FDA-Public Use
  Company Number: RU-SA-2018SA101437

PATIENT
  Age: 6 Year

DRUGS (4)
  1. ALEMTUZUMAB [Suspect]
     Active Substance: ALEMTUZUMAB
     Indication: BONE MARROW CONDITIONING REGIMEN
     Dosage: UNK UNK,UNK
     Route: 065
  2. FLUDARABINE PHOSPHATE. [Suspect]
     Active Substance: FLUDARABINE PHOSPHATE
     Indication: BONE MARROW CONDITIONING REGIMEN
     Dosage: UNK UNK,UNK
     Route: 065
  3. MYLERAN [Suspect]
     Active Substance: BUSULFAN
     Indication: BONE MARROW CONDITIONING REGIMEN
     Dosage: UNK UNK,UNK
     Route: 065
  4. CYCLOSPORIN [Suspect]
     Active Substance: CYCLOSPORINE
     Indication: PROPHYLAXIS AGAINST GRAFT VERSUS HOST DISEASE

REACTIONS (6)
  - Product use issue [Unknown]
  - Renal tubular disorder [Unknown]
  - Haemophilus infection [Unknown]
  - Herpes zoster meningoencephalitis [Unknown]
  - Meningitis pneumococcal [Unknown]
  - Meningoencephalitis herpetic [Unknown]
